FAERS Safety Report 9261457 (Version 5)
Quarter: 2014Q1

REPORT INFORMATION
  Report Type: Spontaneous
  Country: BR (occurrence: BR)
  Receive Date: 20130429
  Receipt Date: 20140313
  Transmission Date: 20141002
  Serious: Yes (Hospitalization, Other)
  Sender: FDA-Public Use
  Company Number: BR-PFIZER INC-2013129647

PATIENT
  Sex: Male

DRUGS (1)
  1. GEODON [Suspect]
     Indication: MENTAL DISORDER
     Dosage: 80 MG, 2X/DAY
     Route: 048
     Dates: start: 2008, end: 201302

REACTIONS (14)
  - Infarction [Recovered/Resolved]
  - Conjunctivitis bacterial [Recovered/Resolved]
  - Corneal lesion [Not Recovered/Not Resolved]
  - Retinal injury [Not Recovered/Not Resolved]
  - Diabetes mellitus [Not Recovered/Not Resolved]
  - Hypertension [Not Recovered/Not Resolved]
  - Hepatic enzyme increased [Recovering/Resolving]
  - Weight decreased [Unknown]
  - Paraesthesia [Recovered/Resolved]
  - Tachycardia [Recovered/Resolved]
  - Dyspnoea [Recovered/Resolved]
  - Headache [Recovered/Resolved]
  - Tremor [Recovered/Resolved]
  - Dizziness [Recovered/Resolved]
